FAERS Safety Report 5942160-7 (Version None)
Quarter: 2008Q4

REPORT INFORMATION
  Report Type: 
  Country: None (occurrence: None)
  Receive Date: 20081104
  Receipt Date: 20081104
  Transmission Date: 20090506
  Serious: Yes (Life-Threatening)
  Sender: FDA-Public Use
  Company Number: None

PATIENT
  Age: 60 Year
  Sex: Male
  Weight: 107.3 kg

DRUGS (1)
  1. IODIXANOL [Suspect]
     Indication: VENOGRAM
     Dosage: 50 ML ONCE IV
     Route: 042
     Dates: start: 20080929, end: 20080929

REACTIONS (4)
  - ANXIETY [None]
  - DYSPNOEA [None]
  - PHARYNGEAL OEDEMA [None]
  - RASH [None]
